FAERS Safety Report 5519534-1 (Version None)
Quarter: 2007Q4

REPORT INFORMATION
  Report Type: 
  Country: None (occurrence: None)
  Receive Date: 20071116
  Receipt Date: 20071112
  Transmission Date: 20080405
  Serious: Yes (Hospitalization, Congenital Anomaly)
  Sender: FDA-Public Use
  Company Number: B0479732A

PATIENT

DRUGS (6)
  1. FLUTIDE DISKUS [Suspect]
     Indication: DRUG USE FOR UNKNOWN INDICATION
     Dates: end: 20070705
  2. SEREVENT [Suspect]
     Indication: DRUG USE FOR UNKNOWN INDICATION
     Dosage: 50MCG TWICE PER DAY
     Dates: end: 20070705
  3. CEFOTAX [Concomitant]
     Dosage: 4G PER DAY
     Dates: start: 20070609, end: 20070614
  4. SOLU-MEDROL [Concomitant]
     Dosage: 160MG PER DAY
     Dates: start: 20070609, end: 20070611
  5. PREDONINE [Concomitant]
     Dates: start: 20070612, end: 20070621
  6. MAGNESIUM OXIDE [Concomitant]
     Dosage: 1.5G PER DAY
     Dates: start: 20070612, end: 20070625

REACTIONS (4)
  - CYANOSIS [None]
  - DRUG EXPOSURE DURING PREGNANCY [None]
  - FALLOT'S TETRALOGY [None]
  - SKIN DISCOLOURATION [None]
